FAERS Safety Report 7183330-2 (Version None)
Quarter: 2010Q4

REPORT INFORMATION
  Report Type: 
  Country: None (occurrence: None)
  Receive Date: 20101208
  Receipt Date: 20101123
  Transmission Date: 20110411
  Serious: Yes (Hospitalization)
  Sender: FDA-Public Use
  Company Number: 1000017383

PATIENT
  Age: 1 Day
  Sex: Male

DRUGS (1)
  1. ESCITALOPRAM OXALATE [Suspect]
     Dosage: 20 MG (20 MG, 1 IN 1 D), TRANSPLACENTAL
     Route: 064
     Dates: end: 20100803

REACTIONS (7)
  - AGITATION NEONATAL [None]
  - HAEMATOCHEZIA [None]
  - IRRITABLE BOWEL SYNDROME [None]
  - MATERNAL DRUGS AFFECTING FOETUS [None]
  - MELAENA [None]
  - NECROTISING COLITIS [None]
  - PREMATURE BABY [None]
